FAERS Safety Report 6290656 (Version 1)
Quarter: 2020Q3

REPORT INFORMATION
  Report Type: Spontaneous
  Country: FR (occurrence: FR)
  Receive Date: 20070418
  Receipt Date: 20070418
  Transmission Date: 20201105
  Serious: Yes (Hospitalization, Disabling)
  Sender: FDA-Public Use
  Company Number: HQWYE896206APR07

PATIENT
  Age: 67 Year
  Sex: Female

DRUGS (10)
  1. SINTROM [Interacting]
     Active Substance: ACENOCOUMAROL
     Indication: ATRIAL FIBRILLATION
     Route: 048
     Dates: start: 20061215, end: 200701
  2. SINTROM [Interacting]
     Active Substance: ACENOCOUMAROL
     Indication: ATRIAL FLUTTER
  3. LASIX [Interacting]
     Active Substance: FUROSEMIDE
     Indication: ESSENTIAL HYPERTENSION
     Route: 048
     Dates: end: 200701
  4. CORDARONE [Suspect]
     Active Substance: AMIODARONE HYDROCHLORIDE
     Indication: ATRIAL FIBRILLATION
     Dosage: REPORTED AS 200 MG TWICE DAILY AND 200 MG DAILY
     Route: 048
     Dates: start: 20061215, end: 200701
  5. FOLIC ACID. [Interacting]
     Active Substance: FOLIC ACID
     Indication: DEFICIENCY ANAEMIA
     Route: 048
     Dates: end: 200701
  6. LEVOTHYROX [Interacting]
     Active Substance: LEVOTHYROXINE
     Indication: HYPOTHYROIDISM
     Route: 048
     Dates: end: 200701
  7. CORDARONE [Interacting]
     Active Substance: AMIODARONE HYDROCHLORIDE
     Indication: ATRIAL FLUTTER
     Dosage: 200 MG TABLET, DOSE AND FREQUENCY UNSPECIFIED
     Route: 048
     Dates: start: 200701
  8. FERROUS SULFATE. [Interacting]
     Active Substance: FERROUS SULFATE
     Indication: DEFICIENCY ANAEMIA
     Route: 048
     Dates: end: 200701
  9. RIVOTRIL [Concomitant]
     Active Substance: CLONAZEPAM
     Dosage: UNSPECIFIED
  10. LEVOTHYROX [Interacting]
     Active Substance: LEVOTHYROXINE
     Dosage: 75 MCG, DOSE AND FREQUENCY UNSPECIFIED
     Route: 048
     Dates: start: 2007

REACTIONS (4)
  - Drug interaction [Not Recovered/Not Resolved]
  - Subdural haematoma [Not Recovered/Not Resolved]
  - Meningorrhagia [Not Recovered/Not Resolved]
  - International normalised ratio increased [Not Recovered/Not Resolved]

NARRATIVE: CASE EVENT DATE: 20070123
